FAERS Safety Report 22295872 (Version 1)
Quarter: 2023Q2

REPORT INFORMATION
  Report Type: Spontaneous
  Country: TR (occurrence: TR)
  Receive Date: 20230508
  Receipt Date: 20230508
  Transmission Date: 20230721
  Serious: Yes (Other)
  Sender: FDA-Public Use
  Company Number: TR-TAKEDA-2023TUS044162

PATIENT
  Age: 58 Year
  Sex: Male

DRUGS (2)
  1. BRIGATINIB [Suspect]
     Active Substance: BRIGATINIB
     Indication: Lung adenocarcinoma
     Dosage: 90 MILLIGRAM
     Route: 065
  2. BRIGATINIB [Suspect]
     Active Substance: BRIGATINIB
     Dosage: 180 MILLIGRAM
     Route: 065

REACTIONS (1)
  - Autoimmune hepatitis [Recovering/Resolving]
